FAERS Safety Report 9074731 (Version 1)
Quarter: 2013Q1

REPORT INFORMATION
  Report Type: Spontaneous
  Country: US (occurrence: US)
  Receive Date: 20130129
  Receipt Date: 20130129
  Transmission Date: 20140127
  Serious: Yes (Hospitalization)
  Sender: FDA-Public Use
  Company Number: US-CELGENEUS-163-21880-13013728

PATIENT
  Sex: Male
  Weight: 91.25 kg

DRUGS (1)
  1. REVLIMID [Suspect]
     Indication: ACUTE MYELOID LEUKAEMIA
     Dosage: 10 MILLIGRAM
     Route: 048
     Dates: start: 20121228

REACTIONS (3)
  - Renal disorder [Unknown]
  - Cardiac disorder [Unknown]
  - Diabetes mellitus [Unknown]
